FAERS Safety Report 8962677 (Version 1)
Quarter: 2012Q4

REPORT INFORMATION
  Report Type: Report from Study
  Country: ES (occurrence: ES)
  Receive Date: 20121213
  Receipt Date: 20121213
  Transmission Date: 20130627
  Serious: Yes (Hospitalization)
  Sender: FDA-Public Use
  Company Number: ES-ABBOTT-12P-144-1019826-00

PATIENT
  Age: 61 Year
  Sex: Male
  Weight: 75 kg

DRUGS (1)
  1. HUMIRA [Suspect]
     Indication: PSORIASIS
     Dates: start: 20090423

REACTIONS (1)
  - Angina pectoris [Unknown]
